FAERS Safety Report 9849101 (Version 1)
Quarter: 2013Q4

REPORT INFORMATION
  Report Type: Spontaneous
  Country: US (occurrence: None)
  Receive Date: 20131226
  Receipt Date: 20131226
  Transmission Date: 20140711
  Serious: Yes (Other)
  Sender: FDA-Public Use
  Company Number: PHEH2012US018784

PATIENT
  Age: 66 Year
  Sex: Female

DRUGS (2)
  1. ZOMETA (ZOLEDRONATE) UNKNOWN [Suspect]
     Route: 042
  2. ANASTROZOLE (ANASTROZOLE) [Suspect]
     Dates: start: 20100808, end: 20120925

REACTIONS (4)
  - Metastases to liver [None]
  - Metastases to thorax [None]
  - Pericardial effusion [None]
  - Dyspnoea [None]
